FAERS Safety Report 6847301-5 (Version None)
Quarter: 2010Q3

REPORT INFORMATION
  Report Type: 
  Country: None (occurrence: None)
  Receive Date: 20100716
  Receipt Date: 20100707
  Transmission Date: 20110219
  Serious: Yes (Hospitalization)
  Sender: FDA-Public Use
  Company Number: US-JNJFOC-20100702822

PATIENT
  Sex: Female
  Weight: 74.84 kg

DRUGS (2)
  1. DURAGESIC-100 [Suspect]
     Indication: PAIN
     Route: 062
  2. METHADONE HCL [Suspect]
     Indication: PAIN
     Route: 065

REACTIONS (3)
  - DIVERTICULITIS [None]
  - HEART RATE DECREASED [None]
  - PAIN [None]
